FAERS Safety Report 9022258 (Version 1)
Quarter: 2013Q1

REPORT INFORMATION
  Report Type: Spontaneous
  Country: US (occurrence: US)
  Receive Date: 20130118
  Receipt Date: 20130118
  Transmission Date: 20140127
  Serious: Yes (Other)
  Sender: FDA-Public Use
  Company Number: PHEH2013US001489

PATIENT
  Sex: Female

DRUGS (1)
  1. EXELON PATCH [Suspect]
     Route: 062

REACTIONS (1)
  - Hypoacusis [Unknown]
